FAERS Safety Report 24393829 (Version 2)
Quarter: 2024Q4

REPORT INFORMATION
  Report Type: Spontaneous
  Country: BR (occurrence: BR)
  Receive Date: 20241003
  Receipt Date: 20241015
  Transmission Date: 20250115
  Serious: Yes (Other)
  Sender: MERCK
  Company Number: BR-009507513-2410BRA000760

PATIENT
  Age: 51 Year
  Sex: Female

DRUGS (1)
  1. PEMBROLIZUMAB [Suspect]
     Active Substance: PEMBROLIZUMAB
     Indication: Malignant melanoma
     Dosage: UNK

REACTIONS (3)
  - Scleroderma [Unknown]
  - Malignant neoplasm progression [Unknown]
  - Therapy partial responder [Unknown]
